FAERS Safety Report 4399938-3 (Version None)
Quarter: 2004Q3

REPORT INFORMATION
  Report Type: 
  Country: None (occurrence: None)
  Receive Date: 20040716
  Receipt Date: 20040630
  Transmission Date: 20050211
  Serious: Yes (Other)
  Sender: FDA-Public Use
  Company Number: 2004221898JP

PATIENT
  Age: 63 Year
  Sex: Male
  Weight: 64 kg

DRUGS (5)
  1. SOLU-MEDROL [Suspect]
     Indication: BRONCHOPULMONARY ASPERGILLOSIS ALLERGIC
     Dosage: 500 MG, QD
  2. GALENIC (PANIPENEM/BETAMIPRON/ BETAMIPRON, PANIPENEM) [Concomitant]
  3. CLINDAMYCIN [Concomitant]
  4. MINOCYCLINE HCL [Concomitant]
  5. CEFOZOPRAN [Concomitant]

REACTIONS (5)
  - BRONCHOPULMONARY ASPERGILLOSIS [None]
  - CONDITION AGGRAVATED [None]
  - CRYPTOGENIC ORGANIZING PNEUMONIA [None]
  - LUNG INFILTRATION [None]
  - RENAL IMPAIRMENT [None]
